FAERS Safety Report 21766534 (Version 2)
Quarter: 2023Q1

REPORT INFORMATION
  Report Type: Spontaneous
  Country: FR (occurrence: FR)
  Receive Date: 20221222
  Receipt Date: 20230111
  Transmission Date: 20230417
  Serious: Yes (Hospitalization)
  Sender: FDA-Public Use
  Company Number: FR-TEVA-2022-FR-2838410

PATIENT
  Age: 37 Year
  Sex: Female

DRUGS (1)
  1. PIROXICAM [Suspect]
     Active Substance: PIROXICAM
     Indication: Product used for unknown indication
     Route: 065

REACTIONS (2)
  - Pruritus allergic [Unknown]
  - Bronchospasm [Unknown]
